FAERS Safety Report 10611957 (Version 1)
Quarter: 2014Q4

REPORT INFORMATION
  Report Type: Spontaneous
  Country: KR (occurrence: KR)
  Receive Date: 20141126
  Receipt Date: 20141126
  Transmission Date: 20150529
  Serious: Yes (Hospitalization)
  Sender: FDA-Public Use
  Company Number: KR-OTSUKA-US-2014-14127

PATIENT

DRUGS (5)
  1. CHLORPHENIRAMINE MALEATE. [Concomitant]
     Active Substance: CHLORPHENIRAMINE MALEATE
     Indication: TRANSFUSION
     Dosage: 4 MG MILLIGRAM(S), UNKNOWN
     Route: 042
     Dates: start: 20140318, end: 20140318
  2. DACOGEN [Suspect]
     Active Substance: DECITABINE
     Dosage: 20 MG/M2, UNKNOWN
     Route: 042
     Dates: start: 20140421, end: 20140822
  3. AROBEST [Concomitant]
     Indication: MUSCLE RELAXANT THERAPY
     Dosage: 20 MG MILLIGRAM(S), UNKNOWN, 3 FREQUENCY
     Route: 048
     Dates: start: 20140318, end: 20140622
  4. PETHIDINE HCL [Concomitant]
     Indication: PAIN PROPHYLAXIS
     Dosage: 25 MG MILLIGRAM(S), UNKNOWN
     Route: 042
     Dates: start: 20140318, end: 20140318
  5. DACOGEN [Suspect]
     Active Substance: DECITABINE
     Indication: ACUTE MYELOID LEUKAEMIA
     Dosage: 20 MG/M2, UNKNOWN
     Route: 042
     Dates: start: 20140205, end: 20140314

REACTIONS (1)
  - Haematochezia [Recovered/Resolved]

NARRATIVE: CASE EVENT DATE: 20141014
